FAERS Safety Report 12696884 (Version 1)
Quarter: 2016Q3

REPORT INFORMATION
  Report Type: Spontaneous
  Country: US (occurrence: None)
  Receive Date: 20160829
  Receipt Date: 20160829
  Transmission Date: 20161109
  Serious: Yes (Other)
  Sender: FDA-Public Use
  Company Number: None

PATIENT
  Age: 66 Year
  Sex: Female
  Weight: 104.33 kg

DRUGS (2)
  1. STEROID-PREDNISONE [Suspect]
     Active Substance: PREDNISONE
     Indication: RASH
     Route: 048
     Dates: start: 20160818
  2. STEROID-PREDNISONE [Suspect]
     Active Substance: PREDNISONE
     Indication: URTICARIA
     Route: 048
     Dates: start: 20160818

REACTIONS (10)
  - Pruritus [None]
  - Irritability [None]
  - Swelling face [None]
  - Tongue discolouration [None]
  - Lip swelling [None]
  - Skin burning sensation [None]
  - Paraesthesia [None]
  - Malaise [None]
  - Hyperhidrosis [None]
  - Rash generalised [None]

NARRATIVE: CASE EVENT DATE: 20160818
